FAERS Safety Report 18200218 (Version 1)
Quarter: 2020Q3

REPORT INFORMATION
  Report Type: Spontaneous
  Country: US (occurrence: US)
  Receive Date: 20200826
  Receipt Date: 20200826
  Transmission Date: 20201103
  Serious: No
  Sender: FDA-Public Use
  Company Number: US-TEVA-2020-US-1818214

PATIENT
  Age: 69 Year
  Sex: Female

DRUGS (3)
  1. FLUTICASONE PROPIONATE/SALMETEROL [Suspect]
     Active Substance: FLUTICASONE PROPIONATE\SALMETEROL XINAFOATE
     Indication: ALLERGIC COUGH
     Dosage: FORM STRENGTH: 232/14 MCG, FREQUENCY: 1 PUFF TWICE DAILY
     Route: 065
     Dates: start: 20200302
  2. FLUTICASONE PROPIONATE/SALMETEROL [Suspect]
     Active Substance: FLUTICASONE PROPIONATE\SALMETEROL XINAFOATE
     Route: 065
     Dates: start: 2020
  3. VENTOLIN [Concomitant]
     Active Substance: ALBUTEROL SULFATE

REACTIONS (6)
  - Small airways disease [Unknown]
  - Somnolence [Unknown]
  - Arteriosclerosis coronary artery [Unknown]
  - Product administration error [Unknown]
  - Fatigue [Unknown]
  - Therapy interrupted [Unknown]

NARRATIVE: CASE EVENT DATE: 2020
